FAERS Safety Report 20560449 (Version 3)
Quarter: 2022Q1

REPORT INFORMATION
  Report Type: Report from Study
  Country: US (occurrence: US)
  Receive Date: 20220307
  Receipt Date: 20220324
  Transmission Date: 20220423
  Serious: Yes (Hospitalization)
  Sender: FDA-Public Use
  Company Number: US-TAKEDA-2022TUS013537

PATIENT
  Sex: Male
  Weight: 71.3 kg

DRUGS (3)
  1. MARIBAVIR [Suspect]
     Active Substance: MARIBAVIR
     Indication: Cytomegalovirus infection
     Dosage: 400 MILLIGRAM, BID
     Route: 048
     Dates: start: 20220212
  2. MARIBAVIR [Suspect]
     Active Substance: MARIBAVIR
     Indication: Prophylaxis
     Dosage: 400 MILLIGRAM, BID
     Route: 048
     Dates: start: 20220222
  3. AZACITIDINE [Concomitant]
     Active Substance: AZACITIDINE
     Indication: Neoplasm malignant
     Route: 042

REACTIONS (2)
  - Weight decreased [Unknown]
  - Fatigue [Unknown]
